FAERS Safety Report 12673253 (Version 1)
Quarter: 2016Q3

REPORT INFORMATION
  Report Type: Spontaneous
  Country: BR (occurrence: BR)
  Receive Date: 20160822
  Receipt Date: 20160822
  Transmission Date: 20161109
  Serious: Yes (Hospitalization)
  Sender: FDA-Public Use
  Company Number: PHHY2016BR114673

PATIENT
  Sex: Male
  Weight: 16 kg

DRUGS (1)
  1. ILARIS [Suspect]
     Active Substance: CANAKINUMAB
     Indication: CHRONIC INFANTILE NEUROLOGICAL CUTANEOUS AND ARTICULAR SYNDROME
     Dosage: EVERY 8 WEEKS
     Route: 030

REACTIONS (5)
  - Joint lock [Unknown]
  - Renal function test abnormal [Unknown]
  - Incorrect route of drug administration [Unknown]
  - Chronic infantile neurological cutaneous and articular syndrome [Unknown]
  - Condition aggravated [Unknown]
